FAERS Safety Report 25604381 (Version 1)
Quarter: 2025Q3

REPORT INFORMATION
  Report Type: Other
  Country: CN (occurrence: CN)
  Receive Date: 20250725
  Receipt Date: 20250725
  Transmission Date: 20251021
  Serious: Yes (Hospitalization, Other)
  Sender: TETRAPHASE PHARMACEUTICALS, INC.
  Company Number: None

PATIENT

DRUGS (4)
  1. XERAVA [Suspect]
     Active Substance: ERAVACYCLINE DIHYDROCHLORIDE
     Indication: Klebsiella infection
     Dosage: 50 MG, BID
     Route: 041
     Dates: start: 20250619, end: 20250703
  2. CEFTAZIDIME [Suspect]
     Active Substance: CEFTAZIDIME
     Indication: Klebsiella infection
     Dosage: 1.25 G, TID
     Route: 041
     Dates: start: 20250624, end: 20250706
  3. LEVOCARNITINE [Concomitant]
     Active Substance: LEVOCARNITINE
     Indication: Symptomatic treatment
     Route: 041
     Dates: start: 20250612, end: 20250708
  4. ULINASTATIN [Concomitant]
     Active Substance: ULINASTATIN
     Indication: Symptomatic treatment
     Dosage: 40 G, TID
     Dates: start: 20250615, end: 20250702

REACTIONS (4)
  - Coagulopathy [Recovering/Resolving]
  - Blood bilirubin increased [Recovering/Resolving]
  - Bilirubin conjugated increased [Recovering/Resolving]
  - Off label use [Unknown]

NARRATIVE: CASE EVENT DATE: 20250619
